APPROVED DRUG PRODUCT: ADDERALL 12.5
Active Ingredient: AMPHETAMINE ASPARTATE; AMPHETAMINE SULFATE; DEXTROAMPHETAMINE SACCHARATE; DEXTROAMPHETAMINE SULFATE
Strength: 3.125MG;3.125MG;3.125MG;3.125MG **Federal Register determination that product was not discontinued or withdrawn for safety or effectiveness reasons**
Dosage Form/Route: TABLET;ORAL
Application: N011522 | Product #012
Applicant: TEVA WOMENS HEALTH INC
Approved: Aug 31, 2000 | RLD: Yes | RS: No | Type: DISCN